FAERS Safety Report 7395672-6 (Version None)
Quarter: 2011Q2

REPORT INFORMATION
  Report Type: 
  Country: None (occurrence: None)
  Receive Date: 20110405
  Receipt Date: 20110331
  Transmission Date: 20111010
  Serious: Yes (Death, Hospitalization)
  Sender: FDA-Public Use
  Company Number: FR-CELGENEUS-056-C5013-11010841

PATIENT
  Sex: Female
  Weight: 80 kg

DRUGS (21)
  1. ACEBUTOLOL [Concomitant]
     Dosage: 400 MILLIGRAM
     Route: 048
     Dates: start: 20081227
  2. ALTOCEL GE [Concomitant]
     Indication: GASTROENTERITIS
     Route: 048
     Dates: start: 20100208
  3. NABUMETONE [Concomitant]
     Dosage: 1 PILL DAILY
     Route: 048
     Dates: start: 20100526
  4. DEXAMETHASONE [Suspect]
     Dosage: 40 MILLIGRAM
     Route: 065
     Dates: start: 20101209, end: 20101230
  5. LANTUS [Concomitant]
     Indication: DIABETES MELLITUS
     Dosage: 24 MILLILITER
     Route: 058
     Dates: start: 20090105
  6. AERIUS [Concomitant]
     Indication: PROPHYLAXIS
     Dosage: 5 MILLIGRAM
     Route: 048
     Dates: start: 20090207
  7. GRANOCYTE 34 [Concomitant]
     Indication: NEUTROPENIA
     Route: 058
     Dates: start: 20090615
  8. LENALIDOMIDE [Suspect]
     Indication: MULTIPLE MYELOMA
     Dosage: 25 MILLIGRAM
     Route: 048
     Dates: start: 20090225, end: 20110108
  9. AMLODIPINE BESYLATE [Concomitant]
     Dosage: 10 MILLIGRAM
     Route: 048
     Dates: start: 20080616
  10. LENALIDOMIDE [Suspect]
     Dosage: 25 MILLIGRAM
     Route: 048
     Dates: start: 20110106, end: 20110108
  11. NEO RECORMON [Concomitant]
     Dosage: 8571.4286 INTERNATIONAL UNITS MILLIONS
     Route: 058
     Dates: start: 20100721
  12. THROMBOSIS PROPHYLAXIS [Concomitant]
     Indication: THROMBOSIS PROPHYLAXIS
     Route: 065
  13. BURINEX [Concomitant]
     Dosage: 1 MILLIGRAM
     Route: 048
     Dates: start: 20081227
  14. MODOPAR [Concomitant]
     Dosage: 375 MILLIGRAM
     Route: 048
     Dates: start: 20091119
  15. DEXAMETHASONE [Suspect]
     Indication: MULTIPLE MYELOMA
     Dosage: 40 MILLIGRAM
     Route: 065
     Dates: start: 20090225
  16. KARDEGIC [Concomitant]
     Indication: THROMBOSIS PROPHYLAXIS
     Dosage: 75 MILLIGRAM
     Route: 048
     Dates: start: 20090210
  17. NEO RECORMON [Concomitant]
     Indication: PROPHYLAXIS
     Dosage: 4285.7143 INTERNATIONAL UNITS MILLIONS
     Route: 058
     Dates: start: 20090825, end: 20100720
  18. INNOHEP [Concomitant]
     Indication: THROMBOSIS PROPHYLAXIS
     Dosage: .7 MILLILITER
     Route: 058
     Dates: start: 20090605
  19. IMODIUM [Concomitant]
     Indication: PROPHYLAXIS
     Dosage: MAXIMUM 6 TABLETS DAILY
     Route: 048
     Dates: start: 20100207
  20. REPAGLINIDE [Concomitant]
     Indication: DIABETES MELLITUS
     Dosage: 2 MILLIGRAM
     Route: 048
     Dates: start: 20080916
  21. ALTOCEL GE [Concomitant]
     Indication: PROPHYLAXIS

REACTIONS (1)
  - METASTASES TO CENTRAL NERVOUS SYSTEM [None]
